FAERS Safety Report 6386595-X (Version None)
Quarter: 2009Q4

REPORT INFORMATION
  Report Type: 
  Country: None (occurrence: None)
  Receive Date: 20091002
  Receipt Date: 20090407
  Transmission Date: 20100525
  Serious: Yes (Disabling, Other)
  Sender: FDA-Public Use
  Company Number: US-ASTRAZENECA-2009UW08702

PATIENT
  Age: 56 Year
  Sex: Female

DRUGS (2)
  1. ARIMIDEX [Suspect]
     Indication: HYSTERECTOMY
     Route: 048
     Dates: start: 20090301, end: 20090401
  2. ARIMIDEX [Suspect]
     Indication: UTERINE LEIOMYOMA
     Route: 048
     Dates: start: 20090301, end: 20090401

REACTIONS (3)
  - ARTHRALGIA [None]
  - BLOOD PRESSURE INCREASED [None]
  - HOT FLUSH [None]
